FAERS Safety Report 4997170-3 (Version None)
Quarter: 2006Q2

REPORT INFORMATION
  Report Type: 
  Country: None (occurrence: None)
  Receive Date: 20060508
  Receipt Date: 20060508
  Transmission Date: 20061013
  Serious: Yes (Other)
  Sender: FDA-Public Use
  Company Number: None

PATIENT
  Age: 56 Year
  Sex: Male
  Weight: 102.0593 kg

DRUGS (1)
  1. GATIFLOXACIN [Suspect]
     Indication: PROSTATITIS
     Dosage: ONCE PER DAY PO  ABOUT  ONE OR TWO MONTHS
     Route: 048

REACTIONS (1)
  - DIARRHOEA [None]
